FAERS Safety Report 7634618 (Version 5)
Quarter: 2014Q2

REPORT INFORMATION
  Report Type: Report from Study
  Country: US (occurrence: US)
  Receive Date: 20101020
  Receipt Date: 20140401
  Transmission Date: 20141212
  Serious: Yes (Hospitalization, Other)
  Sender: FDA-Public Use
  Company Number: US-ALEXION-A201001298

PATIENT
  Age: 59 Year
  Sex: Male

DRUGS (2)
  1. SOLIRIS [Suspect]
     Indication: PAROXYSMAL NOCTURNAL HAEMOGLOBINURIA
     Dosage: 900 MG, Q2W
     Route: 042
  2. ATRIXA [Concomitant]
     Indication: THROMBOSIS
     Dosage: 10 MG, QD
     Route: 058

REACTIONS (4)
  - Cellulitis staphylococcal [Recovered/Resolved]
  - Transfusion [Unknown]
  - Haemoglobin decreased [Not Recovered/Not Resolved]
  - Dyspnoea [Unknown]
